FAERS Safety Report 8551945-2 (Version None)
Quarter: 2012Q3

REPORT INFORMATION
  Report Type: 
  Country: None (occurrence: None)
  Receive Date: 20120730
  Receipt Date: 20120722
  Transmission Date: 20120928
  Serious: Yes (Hospitalization, Other)
  Sender: FDA-Public Use
  Company Number: DE-ABBOTT-12P-062-0959646-00

PATIENT
  Age: 40 Year
  Sex: Male

DRUGS (2)
  1. MARCUMAR [Concomitant]
     Indication: THROMBOSIS PROPHYLAXIS
  2. HUMIRA [Suspect]
     Indication: CROHN'S DISEASE
     Dates: start: 20120101

REACTIONS (2)
  - HAEMATEMESIS [None]
  - SYNCOPE [None]
